FAERS Safety Report 20876530 (Version 3)
Quarter: 2023Q1

REPORT INFORMATION
  Report Type: Spontaneous
  Country: US (occurrence: US)
  Receive Date: 20220526
  Receipt Date: 20230315
  Transmission Date: 20230418
  Serious: Yes (Other)
  Sender: FDA-Public Use
  Company Number: US-BRISTOL-MYERS SQUIBB COMPANY-2022-034252

PATIENT
  Age: 83 Year
  Sex: Female
  Weight: 60.781 kg

DRUGS (3)
  1. REVLIMID [Suspect]
     Active Substance: LENALIDOMIDE
     Indication: Plasma cell myeloma
     Dosage: D 1-21 Q 28 DAYS ?DRUG ONGOING
     Route: 048
     Dates: start: 20201026
  2. REVLIMID [Suspect]
     Active Substance: LENALIDOMIDE
     Dosage: DAILY 1-21, THEN 7 DAYS OFF
     Route: 048
     Dates: start: 20220630
  3. REVLIMID [Suspect]
     Active Substance: LENALIDOMIDE
     Dosage: D1-21 Q28 DAYS.
     Route: 048
     Dates: start: 20220605

REACTIONS (2)
  - Immunoglobulins decreased [Not Recovered/Not Resolved]
  - Neuropathy peripheral [Not Recovered/Not Resolved]
